FAERS Safety Report 11309015 (Version 1)
Quarter: 2015Q3

REPORT INFORMATION
  Report Type: Spontaneous
  Country: US (occurrence: US)
  Receive Date: 20150724
  Receipt Date: 20150724
  Transmission Date: 20151125
  Serious: Yes (Death, Other)
  Sender: FDA-Public Use
  Company Number: US-TEVA-580862USA

PATIENT
  Age: 69 Year
  Sex: Male

DRUGS (1)
  1. VORICONAZOLE. [Suspect]
     Active Substance: VORICONAZOLE
     Indication: PROPHYLAXIS
     Dosage: APPROXIMATELY EVERY 2-3 MONTHS FOR THE LAST 5+ YEARS
     Route: 065

REACTIONS (1)
  - Metastatic squamous cell carcinoma [Fatal]
